FAERS Safety Report 8771283 (Version 1)
Quarter: 2012Q4

REPORT INFORMATION
  Report Type: 
  Country: FR (occurrence: FR)
  Receive Date: 20120905
  Receipt Date: 20120905
  Transmission Date: 20130627
  Serious: Yes (Life-Threatening, Hospitalization, Other)
  Sender: FDA-Public Use
  Company Number: FR-BRISTOL-MYERS SQUIBB COMPANY-16906448

PATIENT
  Age: 75 Year
  Sex: Male
  Weight: 107 kg

DRUGS (8)
  1. APROVEL TABS 150 MG [Suspect]
     Indication: BRONCHIAL CARCINOMA
     Route: 048
     Dates: end: 20120703
  2. HYPERIUM [Suspect]
     Indication: BRONCHIAL CARCINOMA
     Route: 048
     Dates: end: 20120703
  3. TARCEVA [Suspect]
     Indication: BRONCHIAL CARCINOMA
     Route: 048
     Dates: start: 20120607, end: 20120703
  4. HYDROCORTISONE [Concomitant]
  5. DIFFU-K [Concomitant]
  6. ZOCOR [Concomitant]
     Dosage: 0.5/day
  7. ACTONEL [Concomitant]
  8. TAXOTERE [Concomitant]
     Indication: BRONCHIAL CARCINOMA
     Dates: start: 201205

REACTIONS (5)
  - Rash [Recovering/Resolving]
  - Diarrhoea [Recovering/Resolving]
  - Asthenia [Recovering/Resolving]
  - Dehydration [Recovered/Resolved]
  - Renal failure acute [Recovering/Resolving]
